FAERS Safety Report 12468689 (Version 1)
Quarter: 2016Q2

REPORT INFORMATION
  Report Type: Spontaneous
  Country: JP (occurrence: JP)
  Receive Date: 20160615
  Receipt Date: 20160615
  Transmission Date: 20160815
  Serious: Yes (Death)
  Sender: FDA-Public Use
  Company Number: PHJP1997JP002095

PATIENT
  Age: 20 Year
  Sex: Male

DRUGS (3)
  1. SANDIMMUN SIM+CAP [Suspect]
     Active Substance: CYCLOSPORINE
     Indication: NON-HODGKIN^S LYMPHOMA
  2. SANDIMMUN SIM+CAP [Suspect]
     Active Substance: CYCLOSPORINE
     Indication: GRAFT VERSUS HOST DISEASE
     Route: 048
  3. SANDIMMUN SIM+CAP [Suspect]
     Active Substance: CYCLOSPORINE
     Indication: STEM CELL TRANSPLANT

REACTIONS (4)
  - Neuropathy peripheral [Fatal]
  - Rash [Recovered/Resolved]
  - Alopecia [Unknown]
  - Sjogren^s syndrome [Unknown]
